FAERS Safety Report 4553719-6 (Version None)
Quarter: 2004Q4

REPORT INFORMATION
  Report Type: 
  Country: None (occurrence: None)
  Receive Date: 20041229
  Receipt Date: 20041216
  Transmission Date: 20050328
  Serious: Yes (Disabling)
  Sender: FDA-Public Use
  Company Number: 2004UW24334

PATIENT
  Age: 54 Year
  Sex: Male
  Weight: 66.6788 kg

DRUGS (4)
  1. CRESTOR [Suspect]
     Indication: DYSLIPIDAEMIA
     Dosage: 10 MG DAILY
     Dates: start: 20041001, end: 20041111
  2. CRESTOR [Suspect]
     Indication: HYPERLIPIDAEMIA
     Dosage: 10 MG DAILY
     Dates: start: 20041001, end: 20041111
  3. ASPIRIN [Concomitant]
  4. AVANDAMET [Concomitant]

REACTIONS (2)
  - HEPATITIS [None]
  - RHABDOMYOLYSIS [None]
